FAERS Safety Report 8346112-1 (Version None)
Quarter: 2012Q2

REPORT INFORMATION
  Report Type: 
  Country: None (occurrence: None)
  Receive Date: 20120509
  Receipt Date: 20120427
  Transmission Date: 20120825
  Serious: Yes (Life-Threatening)
  Sender: FDA-Public Use
  Company Number: CA-JNJFOC-20120414250

PATIENT
  Sex: Female
  Weight: 63.6 kg

DRUGS (14)
  1. SYMBICORT [Concomitant]
     Route: 065
  2. TRAZODONE HYDROCHLORIDE [Concomitant]
     Route: 065
  3. VENTOLIN [Concomitant]
     Route: 065
  4. GRAVOL TAB [Concomitant]
     Route: 065
  5. SOLU-CORTEF [Concomitant]
     Indication: PREMEDICATION
     Route: 042
  6. REMICADE [Suspect]
     Indication: COLITIS ULCERATIVE
     Route: 042
     Dates: start: 20110912
  7. ALPRAZOLAM [Concomitant]
     Route: 065
  8. HYDROMORPH [Concomitant]
     Route: 065
  9. REMICADE [Suspect]
     Route: 042
     Dates: start: 20120427
  10. BENADRYL [Concomitant]
     Indication: PREMEDICATION
     Route: 042
  11. PREDNISONE [Concomitant]
     Route: 065
  12. VITAMIN D [Concomitant]
     Route: 065
  13. CALCIUM [Concomitant]
     Route: 065
  14. NEXIUM [Concomitant]
     Route: 065

REACTIONS (9)
  - NAUSEA [None]
  - BLOOD PRESSURE INCREASED [None]
  - URTICARIA [None]
  - OEDEMA PERIPHERAL [None]
  - PARAESTHESIA [None]
  - PAIN [None]
  - INFUSION RELATED REACTION [None]
  - HYPOAESTHESIA [None]
  - HEART RATE INCREASED [None]
